FAERS Safety Report 7501019-4 (Version None)
Quarter: 2011Q2

REPORT INFORMATION
  Report Type: 
  Country: None (occurrence: None)
  Receive Date: 20110524
  Receipt Date: 20100524
  Transmission Date: 20111010
  Serious: No
  Sender: FDA-Public Use
  Company Number: US-NOVEN-ALL1-2010-03019

PATIENT

DRUGS (13)
  1. PREMARIN [Concomitant]
     Dosage: .3 MG, 1X/DAY:QD
     Route: 048
     Dates: start: 20070101
  2. LEVEMIR [Concomitant]
     Dosage: 40 UNITS, 1X/DAY:QD IN PM
     Route: 058
     Dates: start: 20070101
  3. SIMVASTATIN [Concomitant]
     Dosage: 20 MG, 1X/DAY:QD
     Route: 048
     Dates: start: 20090101
  4. SEROQUEL XR [Concomitant]
     Dosage: 30 MG, 1X/DAY:QD AT BEDTIME
     Route: 048
     Dates: start: 20090101
  5. LEVEMIR [Concomitant]
     Dosage: 40 UNITS, 1X/DAY:QD IN AM
     Route: 058
     Dates: start: 20070101
  6. NOVOLOG [Concomitant]
     Dosage: 25 UNITS, 1X/DAY:QD IN AM
     Route: 058
     Dates: start: 20070101
  7. NOVOLOG [Concomitant]
     Dosage: 20 UNITS, 1X/DAY:QD
     Route: 058
     Dates: start: 20070101
  8. DAYTRANA [Suspect]
     Dosage: 10 MG, 1X/DAY:QD
     Route: 062
     Dates: start: 20100501
  9. SEROQUEL [Concomitant]
     Dosage: 100 MG, 1X/DAY:QD
     Route: 048
     Dates: start: 20060101
  10. MEDROXYPROGESTERONE [Concomitant]
     Dosage: 2.5 MG, 1X/DAY:QD
     Route: 048
     Dates: start: 20070101
  11. SYNTHROID [Concomitant]
     Dosage: 75 UG, 1X/DAY:QD
     Route: 048
     Dates: start: 20090101
  12. SEROQUEL [Concomitant]
     Dosage: 20 MG, 1X/DAY:QD
     Route: 048
     Dates: start: 20060101
  13. NOVOLOG [Concomitant]
     Dosage: 30 UNITS, 1X/DAY:QD IN THE PM
     Route: 058
     Dates: start: 20070101

REACTIONS (4)
  - APPLICATION SITE ERYTHEMA [None]
  - PRODUCT QUALITY ISSUE [None]
  - DRUG ADMINISTERED AT INAPPROPRIATE SITE [None]
  - OFF LABEL USE [None]
